FAERS Safety Report 14144478 (Version 1)
Quarter: 2017Q4

REPORT INFORMATION
  Report Type: Spontaneous
  Country: IN (occurrence: IN)
  Receive Date: 20171031
  Receipt Date: 20171031
  Transmission Date: 20180321
  Serious: Yes (Other)
  Sender: FDA-Public Use
  Company Number: IN-SUN PHARMACEUTICAL INDUSTRIES LTD-2017R1-145441

PATIENT
  Age: 25 Year
  Sex: Male

DRUGS (11)
  1. CLOZAPINE. [Suspect]
     Active Substance: CLOZAPINE
     Dosage: INCREASED TO 200 MG
     Route: 065
  2. QUETIAPINE. [Concomitant]
     Active Substance: QUETIAPINE
     Dosage: REDUCED TO 400 MG
     Route: 065
  3. CLOZAPINE. [Suspect]
     Active Substance: CLOZAPINE
     Indication: SCHIZOPHRENIA
     Dosage: GRADUAL REDUCTION FROM 300 MG TO 150 MG
     Route: 065
  4. QUETIAPINE. [Concomitant]
     Active Substance: QUETIAPINE
     Indication: PRODUCT USED FOR UNKNOWN INDICATION
     Dosage: 400 MG, QD
     Route: 065
  5. QUETIAPINE. [Concomitant]
     Active Substance: QUETIAPINE
     Dosage: GRADUALLY TAPERED AND STOPPED
     Route: 065
  6. CLOZAPINE. [Suspect]
     Active Substance: CLOZAPINE
     Dosage: GRADUAL REDUCTION TO 100 MG
     Route: 065
     Dates: start: 2011
  7. CLOZAPINE. [Suspect]
     Active Substance: CLOZAPINE
     Dosage: 150 MG, DAILY
     Route: 065
     Dates: start: 201108
  8. SODIUM DIVALPROATE [Concomitant]
     Indication: GENERALISED TONIC-CLONIC SEIZURE
     Dosage: 750 MG, DAILY
     Route: 065
  9. QUETIAPINE. [Concomitant]
     Active Substance: QUETIAPINE
     Dosage: 300 MG, BID
     Route: 065
  10. CLOZAPINE. [Suspect]
     Active Substance: CLOZAPINE
     Indication: SCHIZOPHRENIA
     Dosage: 300 MG, DAILY
     Route: 065
     Dates: start: 2006
  11. CLONAZEPAM. [Concomitant]
     Active Substance: CLONAZEPAM
     Indication: PRODUCT USED FOR UNKNOWN INDICATION
     Dosage: 0.5 MG, BID
     Route: 065

REACTIONS (1)
  - Oculogyric crisis [Recovering/Resolving]

NARRATIVE: CASE EVENT DATE: 2007
